FAERS Safety Report 9838199 (Version 3)
Quarter: 2014Q2

REPORT INFORMATION
  Report Type: Spontaneous
  Country: US (occurrence: US)
  Receive Date: 20140123
  Receipt Date: 20140626
  Transmission Date: 20141212
  Serious: Yes (Other)
  Sender: FDA-Public Use
  Company Number: US-PFIZER INC-2014019608

PATIENT
  Age: 50 Year
  Sex: Female
  Weight: 69 kg

DRUGS (6)
  1. LIPITOR [Suspect]
     Indication: LOW DENSITY LIPOPROTEIN INCREASED
     Dosage: 80 MG, DAILY
     Route: 048
     Dates: start: 1997, end: 201112
  2. LIPITOR [Suspect]
     Indication: CARDIOVASCULAR EVENT PROPHYLAXIS
  3. LIPITOR [Suspect]
     Indication: BLOOD TRIGLYCERIDES INCREASED
  4. ATORVASTATIN CALCIUM [Suspect]
     Indication: BLOOD TRIGLYCERIDES INCREASED
     Dosage: 80 MG, DAILY
     Dates: start: 1997, end: 20120724
  5. ATORVASTATIN CALCIUM [Suspect]
     Dosage: UNK
     Dates: start: 20121207
  6. TRICOR [Concomitant]
     Indication: BLOOD CHOLESTEROL INCREASED
     Dosage: 140 MG, DAILY
     Dates: start: 20031029

REACTIONS (1)
  - Type 2 diabetes mellitus [Not Recovered/Not Resolved]
